FAERS Safety Report 10572816 (Version 1)
Quarter: 2014Q4

REPORT INFORMATION
  Report Type: Spontaneous
  Country: US (occurrence: None)
  Receive Date: 20141107
  Receipt Date: 20141107
  Transmission Date: 20150529
  Serious: No
  Sender: FDA-Public Use
  Company Number: None

PATIENT
  Age: 71 Year
  Sex: Female

DRUGS (1)
  1. AFINITOR [Suspect]
     Active Substance: EVEROLIMUS
     Indication: HEPATIC CANCER
     Route: 048
     Dates: start: 20141002, end: 20141004

REACTIONS (2)
  - No therapeutic response [None]
  - Therapy cessation [None]

NARRATIVE: CASE EVENT DATE: 20141003
